FAERS Safety Report 8619052-8 (Version None)
Quarter: 2012Q3

REPORT INFORMATION
  Report Type: 
  Country: None (occurrence: None)
  Receive Date: 20120824
  Receipt Date: 20120816
  Transmission Date: 20120928
  Serious: Yes (Other)
  Sender: FDA-Public Use
  Company Number: CA-BAYER-2012-067306

PATIENT
  Age: 24 Year
  Sex: Female

DRUGS (2)
  1. AMITRIPTYLINE HYDROCHLORIDE [Concomitant]
     Dosage: UNK
     Dates: start: 20110901, end: 20120119
  2. YASMIN [Suspect]
     Indication: CONTRACEPTION
     Dosage: 1 DF, QD
     Route: 048
     Dates: end: 20120119

REACTIONS (2)
  - OVARIAN ATROPHY [None]
  - OVARIAN FAILURE [None]
